FAERS Safety Report 12176478 (Version 1)
Quarter: 2016Q1

REPORT INFORMATION
  Report Type: Spontaneous
  Country: US (occurrence: US)
  Receive Date: 20160314
  Receipt Date: 20160314
  Transmission Date: 20160526
  Serious: No
  Sender: FDA-Public Use
  Company Number: US-AKORN PHARMACEUTICALS-2015AKN00670

PATIENT
  Age: 31 Year
  Sex: Female
  Weight: 87.75 kg

DRUGS (4)
  1. MYORISAN [Suspect]
     Active Substance: ISOTRETINOIN
     Dosage: 20 MG, 1X/DAY
     Route: 048
     Dates: start: 201509, end: 2015
  2. FISH OIL [Concomitant]
     Active Substance: FISH OIL
  3. MYORISAN [Suspect]
     Active Substance: ISOTRETINOIN
     Indication: PYODERMA
     Dosage: 20 MG, 2X/DAY
     Route: 048
     Dates: start: 20150731, end: 201509
  4. MYORISAN [Suspect]
     Active Substance: ISOTRETINOIN
     Dosage: 20 MG, 2X/DAY
     Route: 048
     Dates: start: 2015

REACTIONS (2)
  - Off label use [Not Recovered/Not Resolved]
  - Arthralgia [Not Recovered/Not Resolved]

NARRATIVE: CASE EVENT DATE: 20150731
